FAERS Safety Report 4345669-5 (Version None)
Quarter: 2004Q2

REPORT INFORMATION
  Report Type: 
  Country: None (occurrence: None)
  Receive Date: 20040421
  Receipt Date: 20040405
  Transmission Date: 20050107
  Serious: Yes (Other)
  Sender: FDA-Public Use
  Company Number: 2003164236US

PATIENT
  Age: 22 Year
  Sex: Female

DRUGS (7)
  1. DEPO-PROVERA SUSPENSION/INJ [Suspect]
     Indication: CONTRACEPTION
     Dosage: NEXT TO LAST INJECTION
     Dates: start: 20030220, end: 20030220
  2. DEPO-PROVERA SUSPENSION/INJ [Suspect]
     Indication: CONTRACEPTION
     Dosage: NEXT TO LAST INJECTION
     Dates: start: 20030519, end: 20030519
  3. DEPO-PROVERA [Suspect]
  4. CELEBREX [Suspect]
  5. FIORINAL [Suspect]
  6. PLAQUENIL [Suspect]
  7. IMITREX [Suspect]

REACTIONS (7)
  - ANTEPARTUM HAEMORRHAGE [None]
  - COMPLICATIONS OF MATERNAL EXPOSURE TO THERAPEUTIC DRUGS [None]
  - NAUSEA [None]
  - PELVIC PAIN [None]
  - SINGLE UMBILICAL ARTERY [None]
  - UNINTENDED PREGNANCY [None]
  - VAGINAL HAEMORRHAGE [None]
